FAERS Safety Report 6630802-2 (Version None)
Quarter: 2010Q1

REPORT INFORMATION
  Report Type: 
  Country: None (occurrence: None)
  Receive Date: 20100311
  Receipt Date: 20100305
  Transmission Date: 20100710
  Serious: Yes (Other)
  Sender: FDA-Public Use
  Company Number: US-SANOFI-AVENTIS-2010SA008863

PATIENT
  Age: 59 Year
  Sex: Male
  Weight: 81.64 kg

DRUGS (6)
  1. LANTUS [Suspect]
     Indication: TYPE 2 DIABETES MELLITUS
     Dosage: DOSE:16 UNIT(S)
     Route: 058
     Dates: start: 20090101
  2. OPTICLICK [Suspect]
     Indication: TYPE 2 DIABETES MELLITUS
     Dates: start: 20090101
  3. MORPHINE [Concomitant]
     Indication: PAIN
     Route: 048
     Dates: start: 20000210
  4. GLIPIZIDE [Concomitant]
     Dates: start: 20051215
  5. BUSPAR [Concomitant]
     Indication: DEPRESSION
     Route: 048
     Dates: start: 20000210
  6. HUMALOG [Concomitant]
     Dosage: DOSE:7 UNIT(S)
     Route: 058
     Dates: start: 20050905

REACTIONS (1)
  - RADIAL NERVE PALSY [None]
